FAERS Safety Report 4913045-X (Version None)
Quarter: 2006Q1

REPORT INFORMATION
  Report Type: 
  Country: None (occurrence: None)
  Receive Date: 20060210
  Receipt Date: 20060127
  Transmission Date: 20060701
  Serious: Yes (Death)
  Sender: FDA-Public Use
  Company Number: L05-USA-03935-40

PATIENT
  Age: 42 Year
  Sex: Female

DRUGS (3)
  1. ESCITALOPRAM OXALATE [Suspect]
  2. METHADONE HCL [Suspect]
  3. TRAMADOL HCL [Suspect]

REACTIONS (5)
  - ANOXIC ENCEPHALOPATHY [None]
  - ASPIRATION [None]
  - BLOOD PRESSURE SYSTOLIC DECREASED [None]
  - CYANOSIS [None]
  - LOSS OF CONSCIOUSNESS [None]
